FAERS Safety Report 7088247-X (Version None)
Quarter: 2010Q4

REPORT INFORMATION
  Report Type: 
  Country: None (occurrence: None)
  Receive Date: 20101108
  Receipt Date: 20101019
  Transmission Date: 20110411
  Serious: Yes (Hospitalization)
  Sender: FDA-Public Use
  Company Number: US-BAYER-201018949NA

PATIENT
  Age: 22 Year
  Sex: Female
  Weight: 100 kg

DRUGS (4)
  1. YAZ [Suspect]
     Indication: PRODUCT USED FOR UNKNOWN INDICATION
     Route: 048
     Dates: start: 20050801, end: 20090601
  2. METFORMIN HCL [Concomitant]
  3. WELLBUTRIN [Concomitant]
  4. PHENTERMINE [Concomitant]

REACTIONS (1)
  - CHOLELITHIASIS [None]
